FAERS Safety Report 5127847-0 (Version None)
Quarter: 2006Q4

REPORT INFORMATION
  Report Type: 
  Country: None (occurrence: None)
  Receive Date: 20061016
  Receipt Date: 20061004
  Transmission Date: 20070319
  Serious: Yes (Hospitalization)
  Sender: FDA-Public Use
  Company Number: US-JNJFOC-20060601126

PATIENT
  Sex: Female
  Weight: 103.42 kg

DRUGS (3)
  1. ORTHO EVRA [Suspect]
     Indication: CONTRACEPTION
     Route: 062
     Dates: start: 20020101, end: 20050701
  2. BACTRIM [Concomitant]
  3. DOXYCYCLINE [Concomitant]

REACTIONS (3)
  - DEEP VEIN THROMBOSIS [None]
  - FURUNCLE [None]
  - STAPHYLOCOCCAL INFECTION [None]
